FAERS Safety Report 22323832 (Version 1)
Quarter: 2023Q2

REPORT INFORMATION
  Report Type: Spontaneous
  Country: US (occurrence: None)
  Receive Date: 20230512
  Receipt Date: 20230512
  Transmission Date: 20230722
  Serious: Yes (Disabling)
  Sender: FDA-Public Use
  Company Number: None

PATIENT
  Age: 67 Year
  Sex: Male
  Weight: 67.05 kg

DRUGS (23)
  1. LEQVIO [Suspect]
     Active Substance: INCLISIRAN SODIUM
     Indication: Blood cholesterol increased
     Route: 058
     Dates: start: 20220418, end: 20230116
  2. LOSARTAN [Concomitant]
     Active Substance: LOSARTAN
  3. NATESTO [Concomitant]
     Active Substance: TESTOSTERONE
  4. oral appliance for OSA [Concomitant]
  5. ASPIRIN [Concomitant]
     Active Substance: ASPIRIN
  6. PROBIOTICS NOS [Concomitant]
     Active Substance: PROBIOTICS NOS
  7. Garlic 5000 [Concomitant]
  8. FISH OIL\OMEGA-3 FATTY ACIDS [Concomitant]
     Active Substance: FISH OIL\OMEGA-3 FATTY ACIDS
  9. ARGININE [Concomitant]
     Active Substance: ARGININE
  10. L Citriline [Concomitant]
  11. B 100 B COMPLEX [Concomitant]
  12. BERBERINE [Concomitant]
     Active Substance: BERBERINE
  13. COENZYME Q10 [Concomitant]
     Active Substance: DIETARY SUPPLEMENT\UBIDECARENONE
  14. Herbal Prostate Combo [Concomitant]
  15. Vitamin K2 as MK-7 MK-4 + D3, DHEA [Concomitant]
  16. GINKGO [Concomitant]
     Active Substance: GINKGO
  17. Lipo Flavanoid [Concomitant]
  18. Ayu-Test [Concomitant]
  19. Brainstorm [Concomitant]
  20. CANDIDA [Concomitant]
     Active Substance: CANDIDA ALBICANS
  21. MAGNESIUM CITRATE [Concomitant]
     Active Substance: MAGNESIUM CITRATE
  22. BETAINE [Concomitant]
     Active Substance: BETAINE
  23. GLUTAMINE [Concomitant]
     Active Substance: GLUTAMINE

REACTIONS (5)
  - Fall [None]
  - Arthralgia [None]
  - Joint swelling [None]
  - Joint stiffness [None]
  - Areflexia [None]

NARRATIVE: CASE EVENT DATE: 20230212
